FAERS Safety Report 20741886 (Version 4)
Quarter: 2022Q2

REPORT INFORMATION
  Report Type: Spontaneous
  Country: US (occurrence: US)
  Receive Date: 20220423
  Receipt Date: 20220520
  Transmission Date: 20220720
  Serious: Yes (Death, Hospitalization, Other)
  Sender: FDA-Public Use
  Company Number: US-UNITED THERAPEUTICS-UNT-2022-008491

PATIENT
  Age: 66 Year
  Sex: Female

DRUGS (3)
  1. REMODULIN [Suspect]
     Active Substance: TREPROSTINIL
     Indication: Pulmonary arterial hypertension
     Dosage: UNK, CONTINUING
     Route: 058
     Dates: start: 20220228
  2. REMODULIN [Suspect]
     Active Substance: TREPROSTINIL
     Dosage: 0.029 ?G/KG, CONTINUING
     Route: 058
  3. REMODULIN [Suspect]
     Active Substance: TREPROSTINIL
     Dosage: 0.0299 ?G/KG, CONTINUING
     Route: 058

REACTIONS (5)
  - Pulmonary hypertension [Fatal]
  - Chest pain [Unknown]
  - Wrong device used [Unknown]
  - Infusion site extravasation [Unknown]
  - Fluid retention [Unknown]

NARRATIVE: CASE EVENT DATE: 20220415
